FAERS Safety Report 8857812 (Version 2)
Quarter: 2012Q4

REPORT INFORMATION
  Report Type: 
  Country: GB (occurrence: GB)
  Receive Date: 20121024
  Receipt Date: 20121203
  Transmission Date: 20130627
  Serious: Yes (Hospitalization, Other)
  Sender: FDA-Public Use
  Company Number: GB-ROCHE-1148208

PATIENT
  Age: 22 Year
  Sex: Female
  Weight: 66.8 kg

DRUGS (12)
  1. XOLAIR [Suspect]
     Indication: ASTHMA
     Route: 058
     Dates: start: 20110203, end: 201201
  2. ADCAL-D3 [Concomitant]
     Route: 065
     Dates: end: 20120205
  3. DIAZEPAM [Concomitant]
     Route: 065
     Dates: end: 20120205
  4. LORATADINE [Concomitant]
     Route: 065
     Dates: end: 20120205
  5. MONTELUKAST [Concomitant]
     Route: 065
     Dates: end: 20120308
  6. SYMBICORT [Concomitant]
  7. PREDNISONE [Concomitant]
     Route: 065
     Dates: end: 20120205
  8. SALBUTAMOL [Concomitant]
  9. FLUTICASONE [Concomitant]
     Route: 065
     Dates: end: 20120205
  10. IPRATROPIUM + SALBUTAMOL [Concomitant]
     Route: 065
     Dates: start: 20120205
  11. FERROUS FUMARATE [Concomitant]
  12. CLARITHROMYCIN [Concomitant]

REACTIONS (3)
  - Maternal exposure during pregnancy [Unknown]
  - Premature labour [Unknown]
  - Asthma [Recovered/Resolved]
